FAERS Safety Report 16470959 (Version 1)
Quarter: 2019Q2

REPORT INFORMATION
  Report Type: Report from Study
  Country: US (occurrence: US)
  Receive Date: 20190624
  Receipt Date: 20190624
  Transmission Date: 20190711
  Serious: Yes (Other)
  Sender: FDA-Public Use
  Company Number: US-BIOGEN-2019BI00742186

PATIENT
  Age: 51 Year
  Sex: Female

DRUGS (3)
  1. TECFIDERA [Suspect]
     Active Substance: DIMETHYL FUMARATE
     Dosage: MAINTENANCE DOSE
     Route: 048
     Dates: start: 20190528
  2. TECFIDERA [Suspect]
     Active Substance: DIMETHYL FUMARATE
     Indication: MULTIPLE SCLEROSIS
     Route: 048
     Dates: start: 20190521, end: 20190527
  3. ASPIRIN. [Suspect]
     Active Substance: ASPIRIN
     Indication: FLUSHING
     Route: 065

REACTIONS (11)
  - Diabetes mellitus [Unknown]
  - Contusion [Unknown]
  - Nausea [Recovered/Resolved]
  - Pruritus [Unknown]
  - Feeling cold [Unknown]
  - Flushing [Recovered/Resolved]
  - Defaecation urgency [Unknown]
  - Weight increased [Unknown]
  - Sensory disturbance [Unknown]
  - Constipation [Unknown]
  - Abdominal discomfort [Unknown]

NARRATIVE: CASE EVENT DATE: 20190521
